FAERS Safety Report 22518158 (Version 1)
Quarter: 2023Q2

REPORT INFORMATION
  Report Type: Spontaneous
  Country: US (occurrence: US)
  Receive Date: 20230605
  Receipt Date: 20230605
  Transmission Date: 20230721
  Serious: No
  Sender: FDA-Public Use
  Company Number: US-VIIV HEALTHCARE LIMITED-US2023AMR076147

PATIENT

DRUGS (4)
  1. RILPIVIRINE [Suspect]
     Active Substance: RILPIVIRINE
     Indication: HIV infection
     Dosage: UNK, CABOTEGRAVIR 600 MG/3 MLS, RILPIVIRINE 900 MG/3 ML
     Route: 065
  2. RILPIVIRINE [Suspect]
     Active Substance: RILPIVIRINE
     Dosage: UNK, 400 MG/ 2 MLS CABOTEGRAVIR AND 600 MG/ 2 MLS RILPIVIRINE
     Route: 065
  3. CABOTEGRAVIR [Suspect]
     Active Substance: CABOTEGRAVIR
     Indication: HIV infection
     Dosage: UNK, CABOTEGRAVIR 600 MG/3 MLS, RILPIVIRINE 900 MG/3 ML
     Route: 065
  4. CABOTEGRAVIR [Suspect]
     Active Substance: CABOTEGRAVIR
     Dosage: UNK, 400 MG/ 2 MLS CABOTEGRAVIR AND 600 MG/ 2 MLS RILPIVIRINE
     Route: 065

REACTIONS (1)
  - Pain [Unknown]
